FAERS Safety Report 6082770-2 (Version None)
Quarter: 2009Q1

REPORT INFORMATION
  Report Type: 
  Country: None (occurrence: None)
  Receive Date: 20090218
  Receipt Date: 20090213
  Transmission Date: 20090719
  Serious: Yes (Death)
  Sender: FDA-Public Use
  Company Number: IT-SANOFI-SYNTHELABO-F01200900152

PATIENT
  Sex: Male

DRUGS (8)
  1. NEURONTIN [Concomitant]
     Dosage: UNK
  2. SOLDESAM [Concomitant]
     Dosage: UNK
     Dates: start: 20081117
  3. JURNISTA [Concomitant]
     Dosage: UNK
     Dates: start: 20081117
  4. OMEPRAZOLE [Concomitant]
     Dates: start: 20081117
  5. CAPECITABINE [Suspect]
     Indication: COLON CANCER METASTATIC
     Dosage: 3600 MG
     Route: 048
     Dates: start: 20081216, end: 20090115
  6. CAPECITABINE [Suspect]
     Dosage: 3000 MG
     Route: 048
     Dates: start: 20090115, end: 20090130
  7. BEVACIZUMAB [Suspect]
     Indication: COLON CANCER METASTATIC
     Dosage: 525 MG
     Route: 042
     Dates: start: 20090115, end: 20090115
  8. OXALIPLATIN [Suspect]
     Indication: COLON CANCER METASTATIC
     Dosage: 230 MG
     Route: 041
     Dates: start: 20090115, end: 20090115

REACTIONS (1)
  - DEATH [None]
